FAERS Safety Report 17635882 (Version 2)
Quarter: 2020Q3

REPORT INFORMATION
  Report Type: Spontaneous
  Country: DE (occurrence: DE)
  Receive Date: 20200407
  Receipt Date: 20200714
  Transmission Date: 20201102
  Serious: Yes (Hospitalization)
  Sender: FDA-Public Use
  Company Number: DE-TEVA-2020-DE-1219890

PATIENT
  Age: 14 Year
  Sex: Male
  Weight: 38 kg

DRUGS (10)
  1. MYCOPHENOLATE MOFETIL. [Suspect]
     Active Substance: MYCOPHENOLATE MOFETIL
     Indication: IMMUNOSUPPRESSION
     Dosage: 2 SEPARATED DOSES:800 MILLIGRAM
     Route: 048
     Dates: start: 201011
  2. AMLODIPIN [Concomitant]
     Active Substance: AMLODIPINE BESYLATE
     Indication: HYPERTENSION
     Dosage: 2 SEPARATED DOSES:10 MILLIGRAM
     Route: 048
     Dates: start: 20170901
  3. BICANORM [Concomitant]
     Active Substance: SODIUM BICARBONATE
     Indication: RENAL TUBULAR ACIDOSIS
     Dosage: 3 SEPARATED DOSES :3 GRAM
     Route: 048
     Dates: start: 201009
  4. MAGNESIUM VERLA N [Concomitant]
     Active Substance: MAGNESIUM
     Indication: BLOOD MAGNESIUM ABNORMAL
     Dosage: 2 SEPARATED DOSES :3.3 MILLIMOL
     Route: 048
     Dates: start: 20180205
  5. EINSALPHA 2?G/ML TROPFEN [Concomitant]
     Indication: CHRONIC KIDNEY DISEASE-MINERAL AND BONE DISORDER
     Dosage: 15 GTT
     Route: 048
     Dates: start: 20100630
  6. FERRO SANOL 30MG/ML [Concomitant]
     Indication: IRON DEFICIENCY
     Dosage: 40 GTT
     Route: 048
     Dates: start: 201303
  7. PREDNISOLON [Suspect]
     Active Substance: PREDNISOLONE
     Indication: IMMUNOSUPPRESSION
     Dosage: 5 MILLIGRAM
     Route: 048
     Dates: start: 201101
  8. VIGANTOL OEL [Concomitant]
     Indication: VITAMIN D DEFICIENCY
     Dosage: 20000IE/ML:8 GTT
     Route: 048
     Dates: start: 201006
  9. REDUCTO?SPEZIAL [Concomitant]
     Indication: CHRONIC KIDNEY DISEASE-MINERAL AND BONE DISORDER
     Dosage: 602MG / 360MG 1? 0 ?1 SINCE AT LEAST 06.2019
     Route: 048
  10. TACROLIMUS. [Suspect]
     Active Substance: TACROLIMUS
     Indication: IMMUNOSUPPRESSION
     Dosage: 2 SEPARATED DOSES:5.6 MILLIGRAM
     Route: 048
     Dates: start: 201703, end: 20190701

REACTIONS (3)
  - Abdominal pain [Recovered/Resolved]
  - Enteritis [Recovered/Resolved]
  - Decreased appetite [Recovered/Resolved]

NARRATIVE: CASE EVENT DATE: 20190630
